FAERS Safety Report 5528585-2 (Version None)
Quarter: 2007Q4

REPORT INFORMATION
  Report Type: 
  Country: None (occurrence: None)
  Receive Date: 20071126
  Receipt Date: 20071030
  Transmission Date: 20080405
  Serious: Yes (Death, Hospitalization)
  Sender: FDA-Public Use
  Company Number: M-04-435

PATIENT
  Age: 72 Year
  Sex: Male

DRUGS (11)
  1. AMIODARONE HCL [Suspect]
     Indication: ARRHYTHMIA
     Dosage: 200 MG, QD, PO
     Route: 048
     Dates: end: 20031009
  2. AMIODARONE HCL [Suspect]
     Indication: ARRHYTHMIA
     Dosage: 200 MG, QD, PO
     Route: 048
  3. PACERONE [Suspect]
     Indication: ARRHYTHMIA
     Dosage: 200 MG, QD, PO
     Route: 048
  4. CORDARONE [Suspect]
     Indication: ARRHYTHMIA
     Dosage: 200 MG, QD, PO
     Route: 048
     Dates: start: 20000401
  5. CORDARONE [Suspect]
     Indication: ARRHYTHMIA
     Dosage: 200 MG, TID, PO
     Route: 048
  6. LISINOPRIL [Concomitant]
  7. LOPRESSOR [Concomitant]
  8. NORVASC [Concomitant]
  9. ZOCOR [Concomitant]
  10. ALBUTEROL [Concomitant]
  11. NASALIDE NASAL SPRAY. [Concomitant]

REACTIONS (18)
  - ACUTE RESPIRATORY DISTRESS SYNDROME [None]
  - ANAEMIA [None]
  - BRONCHOSCOPY ABNORMAL [None]
  - CARDIOMEGALY [None]
  - DRUG TOXICITY [None]
  - HYPERNATRAEMIA [None]
  - HYPERPARATHYROIDISM [None]
  - HYPONATRAEMIA [None]
  - HYPOXIA [None]
  - LUNG INFILTRATION [None]
  - MYOCARDIAL ISCHAEMIA [None]
  - NASOPHARYNGITIS [None]
  - PNEUMONIA [None]
  - PNEUMONITIS [None]
  - RENAL FAILURE [None]
  - RESPIRATORY FAILURE [None]
  - SEPSIS [None]
  - STRESS [None]
